FAERS Safety Report 12077784 (Version 1)
Quarter: 2016Q1

REPORT INFORMATION
  Report Type: Report from Study
  Country: IL (occurrence: IL)
  Receive Date: 20160215
  Receipt Date: 20160215
  Transmission Date: 20160526
  Serious: Yes (Other)
  Sender: FDA-Public Use
  Company Number: PHHY2016IL018639

PATIENT
  Age: 67 Year
  Sex: Male

DRUGS (1)
  1. SANDOSTATIN LAR DEPOT [Suspect]
     Active Substance: OCTREOTIDE ACETATE
     Indication: CARCINOID TUMOUR
     Dosage: 30 MG, QMO (Q4W)
     Route: 030
     Dates: start: 20121216

REACTIONS (1)
  - Bone lesion [Not Recovered/Not Resolved]

NARRATIVE: CASE EVENT DATE: 20160107
